FAERS Safety Report 8355228-5 (Version None)
Quarter: 2012Q2

REPORT INFORMATION
  Report Type: 
  Country: None (occurrence: None)
  Receive Date: 20120511
  Receipt Date: 20120430
  Transmission Date: 20120825
  Serious: Yes (Hospitalization, Other)
  Sender: FDA-Public Use
  Company Number: ES-ELI_LILLY_AND_COMPANY-ES201205001978

PATIENT
  Sex: Female
  Weight: 80 kg

DRUGS (6)
  1. LEVOTHYROXINE SODIUM [Concomitant]
     Indication: THYROID OPERATION
     Dosage: 112 MG, QD
     Route: 048
  2. CARDIONIL [Concomitant]
     Indication: LEFT VENTRICULAR HYPERTROPHY
     Dosage: 60 MG, UNK
     Route: 048
  3. FORTEO [Suspect]
     Indication: OSTEOPOROSIS
     Dosage: 20 UG, QD
     Route: 058
     Dates: start: 20120418
  4. OMEPRAZOLE [Concomitant]
     Dosage: 40 MG, UNK
  5. SINTROM [Concomitant]
     Indication: THROMBOSIS
     Dosage: 8 MG, WEEKLY (1/W)
     Route: 048
  6. VALSARTAN [Concomitant]
     Indication: HYPERTENSION
     Dosage: 1 DF, QD
     Route: 048

REACTIONS (1)
  - HYPERGLYCAEMIA [None]
